FAERS Safety Report 5022568-7 (Version None)
Quarter: 2006Q2

REPORT INFORMATION
  Report Type: 
  Country: None (occurrence: None)
  Receive Date: 20060605
  Receipt Date: 20060519
  Transmission Date: 20061013
  Serious: Yes (Death)
  Sender: FDA-Public Use
  Company Number: GB-2006-012957

PATIENT
  Age: 39 Year

DRUGS (3)
  1. FLUDARABINE PHOSPHATE [Suspect]
     Indication: CHRONIC LYMPHOCYTIC LEUKAEMIA
     Dosage: 25 MG/M2, CYCLE X 5D, INJECTION
     Dates: start: 19990701
  2. CYCLOPHOSPHAMIDE [Concomitant]
  3. GRANULOCYTE COLON STIMULATING FACTOR (GRANULOCYTE COLONY STIMULATING F [Concomitant]

REACTIONS (1)
  - ACUTE MYELOID LEUKAEMIA [None]
